FAERS Safety Report 16464522 (Version 3)
Quarter: 2021Q1

REPORT INFORMATION
  Report Type: Spontaneous
  Country: HU (occurrence: HU)
  Receive Date: 20190621
  Receipt Date: 20210318
  Transmission Date: 20210419
  Serious: Yes (Other)
  Sender: FDA-Public Use
  Company Number: PHHY2019HU140589

PATIENT
  Age: 13 Year
  Sex: Female

DRUGS (5)
  1. AMOXICILLIN SODIUM,POTASSIUM CLAVULANATE [Suspect]
     Active Substance: AMOXICILLIN\CLAVULANATE POTASSIUM
     Indication: OROPHARYNGEAL PAIN
  2. AMOXICILLIN SODIUM,POTASSIUM CLAVULANATE [Suspect]
     Active Substance: AMOXICILLIN\CLAVULANATE POTASSIUM
     Indication: FATIGUE
     Dosage: UNK
     Route: 065
  3. AMOXICILLIN SODIUM,POTASSIUM CLAVULANATE [Suspect]
     Active Substance: AMOXICILLIN\CLAVULANATE POTASSIUM
     Indication: DIZZINESS
  4. AMOXICILLIN SODIUM,POTASSIUM CLAVULANATE [Suspect]
     Active Substance: AMOXICILLIN\CLAVULANATE POTASSIUM
     Indication: PYREXIA
  5. AMOXICILLIN SODIUM,POTASSIUM CLAVULANATE [Suspect]
     Active Substance: AMOXICILLIN\CLAVULANATE POTASSIUM
     Indication: ANAEMIA

REACTIONS (8)
  - Vulval ulceration [Recovering/Resolving]
  - Vulvovaginal injury [Recovering/Resolving]
  - Cystitis [Recovering/Resolving]
  - Epstein-Barr virus infection [Recovering/Resolving]
  - Vulvovaginal pain [Recovering/Resolving]
  - Therapy non-responder [Unknown]
  - Escherichia infection [Recovering/Resolving]
  - Lymphadenopathy [Recovering/Resolving]
